FAERS Safety Report 21445587 (Version 2)
Quarter: 2022Q4

REPORT INFORMATION
  Report Type: Report from Study
  Country: GR (occurrence: GR)
  Receive Date: 20221012
  Receipt Date: 20221212
  Transmission Date: 20230112
  Serious: Yes (Other)
  Sender: FDA-Public Use
  Company Number: GR-BAYER-2022A104263

PATIENT
  Age: 83 Year
  Weight: 95 kg

DRUGS (1)
  1. RIVAROXABAN [Suspect]
     Active Substance: RIVAROXABAN
     Indication: Product used for unknown indication
     Dosage: UNK
     Route: 048
     Dates: start: 20170703

REACTIONS (2)
  - Muscle haemorrhage [Recovered/Resolved]
  - Compartment syndrome [Recovered/Resolved]

NARRATIVE: CASE EVENT DATE: 20180101
